FAERS Safety Report 9254129 (Version 1)
Quarter: 2013Q2

REPORT INFORMATION
  Report Type: Spontaneous
  Country: IT (occurrence: None)
  Receive Date: 20130419
  Receipt Date: 20130419
  Transmission Date: 20140414
  Serious: No
  Sender: FDA-Public Use
  Company Number: 1304ITA004191

PATIENT
  Age: 5 Year
  Sex: Female

DRUGS (1)
  1. ISOCEF (CEFTIBUTEN) ORAL SUSPENSION, 36 MG/ML MG [Suspect]
     Indication: PYREXIA
     Dosage: TOTAL DAILY DOSE 9 MG/KG OF BODY WEIGHT, QD ORAL
     Route: 048
     Dates: start: 20121015, end: 20121018

REACTIONS (2)
  - Prurigo [None]
  - Rash macular [None]
